FAERS Safety Report 9079029 (Version 6)
Quarter: 2014Q2

REPORT INFORMATION
  Report Type: Report from Study
  Country: GB (occurrence: GB)
  Receive Date: 20130201
  Receipt Date: 20140521
  Transmission Date: 20141212
  Serious: Yes (Death, Hospitalization, Other)
  Sender: FDA-Public Use
  Company Number: GB-OTSUKA-EU-2011-10133

PATIENT
  Sex: Male
  Weight: 92 kg

DRUGS (22)
  1. SAMSCA [Suspect]
     Indication: INAPPROPRIATE ANTIDIURETIC HORMONE SECRETION
     Dosage: 15 MG MILLIGRAM(S), DAILY DOSE
     Route: 048
     Dates: start: 20110603, end: 20110624
  2. SAMSCA [Suspect]
     Dosage: 30 MG MILLIGRAM(S), DAILY DOSE
     Route: 048
     Dates: start: 20110624, end: 20110711
  3. SAMSCA [Suspect]
     Dosage: 15 MG MILLIGRAM(S), DAILY DOSE
     Route: 048
     Dates: start: 20110714, end: 20110812
  4. SAMSCA [Suspect]
     Dosage: 30 MG MILLIGRAM(S), DAILY DOSE
     Route: 048
     Dates: start: 20110813, end: 20110816
  5. SAMSCA [Suspect]
     Dosage: 45 MG MILLIGRAM(S), DAILY DOSE
     Route: 048
     Dates: start: 20110817, end: 20110819
  6. SAMSCA [Suspect]
     Dosage: 30 MG MILLIGRAM(S), DAILY DOSE
     Route: 048
     Dates: start: 20110820, end: 20110902
  7. TOPOTECAN [Suspect]
     Indication: CHEMOTHERAPY
     Dosage: 4.25 MG MILLIGRAM(S), DAILY DOSE
     Route: 048
     Dates: start: 20110705, end: 20110710
  8. SIMVASTATIN [Concomitant]
     Indication: HYPERCHOLESTEROLAEMIA
     Dosage: 40 MG MILLIGRAM(S), DAILY DOSE
     Route: 048
     Dates: start: 2011, end: 20110606
  9. RAMIPRIL [Concomitant]
     Indication: HYPERTENSION
     Dosage: 1.25 MG MILLIGRAM(S), DAILY DOSE
     Route: 048
     Dates: start: 2011, end: 20110606
  10. OMEPRAZOLE [Concomitant]
     Dosage: 20 MG MILLIGRAM(S), DAILY DOSE
     Route: 048
     Dates: start: 2011, end: 20110606
  11. ASPIRIN [Concomitant]
     Indication: CARDIOVASCULAR EVENT PROPHYLAXIS
     Dosage: 75 MG MILLIGRAM(S), DAILY DOSE
     Route: 048
     Dates: start: 2011
  12. BISOPROLOL [Concomitant]
     Indication: HYPERTENSION
     Dosage: 2.5 MG MILLIGRAM(S), DAILY DOSE
     Route: 048
     Dates: start: 2011
  13. METACLOPRAMIDE [Concomitant]
     Indication: VOMITING
     Dosage: 30 MG MILLIGRAM(S), DAILY DOSE
     Route: 048
     Dates: start: 20110610, end: 20110705
  14. METACLOPRAMIDE [Concomitant]
     Indication: VOMITING
     Dosage: 10 MG MILLIGRAM(S), DAILY DOSE
     Route: 048
     Dates: start: 20110705, end: 20110705
  15. METACLOPRAMIDE [Concomitant]
     Dosage: 10 MG MILLIGRAM(S), DAILY DOSE
     Route: 048
     Dates: start: 20110813
  16. DIHYDROCODEINE [Concomitant]
     Indication: ANALGESIC THERAPY
     Dosage: 30 MG MILLIGRAM(S), DAILY DOSE
     Route: 048
     Dates: start: 20110711
  17. CYCLIZINE [Concomitant]
     Indication: VOMITING
     Dosage: 50 MG MILLIGRAM(S), DAILY DOSE
     Route: 048
     Dates: start: 20110711, end: 20110813
  18. CYCLIZINE [Concomitant]
     Indication: ANTIEMETIC SUPPORTIVE CARE
  19. CYCLIZINE [Concomitant]
     Indication: NAUSEA
  20. ENSURE PLUS [Concomitant]
     Indication: NUTRITIONAL SUPPLEMENTATION
     Dosage: 220 ML MILLILITRE(S), DAILY DOSE
     Route: 048
     Dates: start: 20110712, end: 20110813
  21. DEXAMETHASONE [Concomitant]
     Indication: PALLIATIVE CARE
     Dosage: 2 MG MILLIGRAM(S), DAILY DOSE
     Route: 048
     Dates: start: 20110719
  22. PARACETAMOL [Concomitant]
     Indication: ANALGESIC THERAPY
     Dosage: 1 G GRAM(S), DAILY DOSE
     Route: 048
     Dates: start: 20110813

REACTIONS (15)
  - Small cell lung cancer [Fatal]
  - Hypophagia [Recovered/Resolved]
  - Vomiting [Recovered/Resolved]
  - Nausea [Recovered/Resolved]
  - Dehydration [Recovered/Resolved]
  - Hyponatraemia [Recovered/Resolved]
  - Hyponatraemia [Recovered/Resolved]
  - Hypokalaemia [Recovered/Resolved]
  - Lethargy [Recovered/Resolved]
  - Vomiting [Recovered/Resolved]
  - Neutropenic sepsis [Recovered/Resolved]
  - Pancytopenia [Recovered/Resolved]
  - White blood cell count increased [Recovered/Resolved]
  - Neutrophil count increased [Not Recovered/Not Resolved]
  - Drug ineffective [Recovered/Resolved]
